FAERS Safety Report 8119270-1 (Version None)
Quarter: 2012Q1

REPORT INFORMATION
  Report Type: 
  Country: None (occurrence: None)
  Receive Date: 20120207
  Receipt Date: 20120123
  Transmission Date: 20120608
  Serious: Yes (Other)
  Sender: FDA-Public Use
  Company Number: CA-JNJFOC-20120202547

PATIENT
  Sex: Female
  Weight: 71.4 kg

DRUGS (9)
  1. FOLIC ACID [Concomitant]
  2. FERROUS SULFATE TAB [Concomitant]
  3. ASACOL [Concomitant]
  4. SERTRALINE HYDROCHLORIDE [Concomitant]
  5. ALDARA [Concomitant]
     Route: 061
  6. REMICADE [Suspect]
     Indication: COLITIS ULCERATIVE
     Dosage: 22 INFLIXIMAB INFUSIONS
     Route: 042
     Dates: start: 20081024
  7. TYLENOL W/ CODEINE [Concomitant]
  8. IMURAN [Concomitant]
  9. VITAMIN D [Concomitant]

REACTIONS (1)
  - GINGIVAL GRAFT [None]
